FAERS Safety Report 6048114-7 (Version None)
Quarter: 2009Q1

REPORT INFORMATION
  Report Type: 
  Country: None (occurrence: None)
  Receive Date: 20090121
  Receipt Date: 20090121
  Transmission Date: 20090719
  Serious: Yes (Life-Threatening, Hospitalization, Congenital Anomaly)
  Sender: FDA-Public Use
  Company Number: None

PATIENT
  Sex: Male
  Weight: 90.7194 kg

DRUGS (2)
  1. MORPHINE SULFATE [Suspect]
     Indication: BACK PAIN
     Dosage: 15 MG TABLETS AS NEEDED
     Dates: start: 20081001
  2. MORPHINE SULFATE [Suspect]
     Indication: BACK PAIN
     Dosage: 15 MG TABLETS AS NEEDED
     Dates: start: 20081101

REACTIONS (4)
  - MEDICATION ERROR [None]
  - OVERDOSE [None]
  - RESPIRATORY ARREST [None]
  - SYNCOPE [None]
